FAERS Safety Report 10072871 (Version 2)
Quarter: 2014Q2

REPORT INFORMATION
  Report Type: Report from Study
  Country: US (occurrence: US)
  Receive Date: 20140411
  Receipt Date: 20140512
  Transmission Date: 20141212
  Serious: Yes (Other)
  Sender: FDA-Public Use
  Company Number: PHEH2014US007091

PATIENT
  Sex: Female
  Weight: 65.8 kg

DRUGS (15)
  1. GILENYA [Suspect]
     Indication: MULTIPLE SCLEROSIS
     Dosage: 0.5 MG, QD
     Route: 048
     Dates: start: 201402
  2. BACLOFEN [Concomitant]
     Indication: MUSCLE SPASTICITY
     Dosage: 10 MG, TID, PRN
     Route: 048
     Dates: start: 20130410
  3. MULTI-VIT [Concomitant]
  4. VIT D [Concomitant]
  5. CALCIUM CITRATE [Concomitant]
     Dosage: 400 MG, UNK
  6. VITAMIN B COMPLEX [Concomitant]
  7. PROVIGIL//MODAFINIL [Concomitant]
     Dosage: 200 MG, UNK
  8. LORAZEPAM [Concomitant]
     Dosage: 1 MG, UNK
  9. NAMENDA [Concomitant]
     Dosage: 10 MG, UNK
  10. ARICEPT [Concomitant]
     Dosage: 5 MG, UNK
  11. PREMARIN [Concomitant]
     Dosage: 0.625 MG, UNK
  12. FOLIC ACID [Concomitant]
     Dosage: 400 UG, UNK
  13. SYMBYAX [Concomitant]
  14. ADDERALL [Concomitant]
     Indication: FATIGUE
     Dosage: 20 MG, QAM
     Route: 048
     Dates: start: 20120823
  15. ADDERALL [Concomitant]
     Dosage: 10 MG, IN AFTERNONN
     Route: 048
     Dates: start: 20130410

REACTIONS (4)
  - Blood urine present [Unknown]
  - Dysuria [Unknown]
  - Fatigue [Not Recovered/Not Resolved]
  - Lethargy [Not Recovered/Not Resolved]
